FAERS Safety Report 8310444-3 (Version None)
Quarter: 2012Q2

REPORT INFORMATION
  Report Type: 
  Country: None (occurrence: None)
  Receive Date: 20120425
  Receipt Date: 20120410
  Transmission Date: 20120825
  Serious: Yes (Death, Life-Threatening, Hospitalization, Other)
  Sender: FDA-Public Use
  Company Number: US-MYLANLABS-2009AC000424

PATIENT
  Sex: Female
  Weight: 63.28 kg

DRUGS (52)
  1. DAYPRO [Concomitant]
  2. MOTRIN [Concomitant]
  3. DEPO-MEDROL [Concomitant]
  4. VOLTAREN [Concomitant]
  5. VIOXX [Concomitant]
  6. ATIVAN [Concomitant]
  7. ZOCOR [Concomitant]
  8. TEMOVATE [Concomitant]
  9. LOZOL [Concomitant]
  10. LIDOCAINE [Concomitant]
     Route: 042
  11. DARVOCET-N 100 [Concomitant]
  12. FLAGYL [Concomitant]
  13. HUMULIN N [Concomitant]
  14. LOZOL [Concomitant]
  15. FOSAMAX [Concomitant]
  16. SOMA [Concomitant]
  17. THYROID [Concomitant]
  18. DIOVAN [Concomitant]
  19. LASIX [Concomitant]
  20. OXYCONTIN [Concomitant]
  21. LORTAB [Concomitant]
  22. CALCIUM CARBONATE [Concomitant]
  23. VASOTEC [Concomitant]
  24. ACTOS [Concomitant]
  25. VALIUM [Concomitant]
  26. ASPIRIN [Concomitant]
  27. MORPHINE SULFATE [Concomitant]
  28. QUININE SULFATE [Concomitant]
  29. CO-GESIC /00116401/ [Concomitant]
  30. PRILOSEC [Concomitant]
  31. MULTI-VITAMINS [Concomitant]
  32. SILICONE /00159501/ [Concomitant]
  33. LIBRIUM [Concomitant]
  34. TEMOVATE [Concomitant]
  35. CORTISONE ACETATE [Concomitant]
     Dosage: 40MG DEPO-MEDROL, 1 CC OF 0.5% MARCAINE, 1 CC OF 1% XYLOCAINE
  36. LISINOPRIL [Concomitant]
  37. KEFLEX [Concomitant]
  38. TYLENOL (CAPLET) [Concomitant]
     Dosage: 2 TABS DURING DAYTIME AND UP TO 6 TO 8 TABS IN 24 HOURS
  39. VITAMIN D [Concomitant]
     Dosage: 600MG -125U
  40. ANTIBIOTIC /00011701/ [Concomitant]
     Route: 061
  41. PROPOXYPHENE NAPSYLATE [Concomitant]
  42. DIGOXIN [Suspect]
     Indication: PRODUCT USED FOR UNKNOWN INDICATION
     Route: 048
     Dates: start: 20050930, end: 20071116
  43. PREDNISONE [Concomitant]
     Dosage: FOR 10 DAYS
  44. RELAFEN [Concomitant]
  45. ARICEPT [Concomitant]
  46. LIBRIUM [Concomitant]
  47. VITAMIN B COMPLEX CAP [Concomitant]
  48. ELAVIL [Concomitant]
  49. PRINIVIL [Concomitant]
  50. HALDOL [Concomitant]
  51. THYROID TAB [Concomitant]
  52. ALCAINE [Concomitant]

REACTIONS (38)
  - RESUSCITATION [None]
  - TOXICITY TO VARIOUS AGENTS [None]
  - VENTRICULAR TACHYCARDIA [None]
  - DIABETES MELLITUS [None]
  - FEELING ABNORMAL [None]
  - BLADDER CATHETERISATION [None]
  - ANGIOPATHY [None]
  - JOINT EFFUSION [None]
  - ANHEDONIA [None]
  - BACK PAIN [None]
  - CEREBROVASCULAR DISORDER [None]
  - DISEASE RECURRENCE [None]
  - ATRIAL FIBRILLATION [None]
  - PAIN [None]
  - CHEST PAIN [None]
  - NUCLEAR MAGNETIC RESONANCE IMAGING ABNORMAL [None]
  - CHEST X-RAY ABNORMAL [None]
  - ECONOMIC PROBLEM [None]
  - ANXIETY [None]
  - CARDIO-RESPIRATORY ARREST [None]
  - BRADYCARDIA [None]
  - DECREASED APPETITE [None]
  - CEREBRAL ATROPHY [None]
  - CEREBELLAR ATROPHY [None]
  - DEATH [None]
  - UNRESPONSIVE TO STIMULI [None]
  - REFUSAL OF TREATMENT BY PATIENT [None]
  - AGITATION [None]
  - ARRHYTHMIA [None]
  - HEART RATE IRREGULAR [None]
  - BRAIN SCAN ABNORMAL [None]
  - OSTEOARTHRITIS [None]
  - EXOSTOSIS [None]
  - INJURY [None]
  - CARDIAC ARREST [None]
  - HYPERTENSION [None]
  - BONE SCAN ABNORMAL [None]
  - PULMONARY FIBROSIS [None]
